FAERS Safety Report 19533209 (Version 1)
Quarter: 2021Q3

REPORT INFORMATION
  Report Type: Report from Study
  Country: US (occurrence: US)
  Receive Date: 20210713
  Receipt Date: 20210713
  Transmission Date: 20211014
  Serious: Yes (Death, Hospitalization, Other)
  Sender: FDA-Public Use
  Company Number: US-B.I. PHARMACEUTICALS,INC./RIDGEFIELD-2020-BI-018819

PATIENT
  Age: 63 Year
  Sex: Male

DRUGS (1)
  1. OFEV [Suspect]
     Active Substance: NINTEDANIB
     Indication: IDIOPATHIC PULMONARY FIBROSIS
     Dosage: TAKE 1 CAPSULE BY MOUTH TWICE A DAY 12 HOURS APART WITH FOOD
     Route: 048
     Dates: start: 20210201

REACTIONS (11)
  - Thrombocytopenia [Fatal]
  - Depression [Recovered/Resolved]
  - Pulmonary fibrosis [Fatal]
  - Acute kidney injury [Fatal]
  - Respiratory failure [Fatal]
  - Chronic obstructive pulmonary disease [Fatal]
  - Tricuspid valve incompetence [Fatal]
  - Diarrhoea [Recovered/Resolved]
  - Hypercalcaemia [Fatal]
  - Chronic left ventricular failure [Fatal]
  - Dyspnoea [Unknown]

NARRATIVE: CASE EVENT DATE: 20210521
